FAERS Safety Report 8584949-4 (Version None)
Quarter: 2012Q3

REPORT INFORMATION
  Report Type: 
  Country: None (occurrence: None)
  Receive Date: 20120810
  Receipt Date: 20120730
  Transmission Date: 20120928
  Serious: Yes (Other)
  Sender: FDA-Public Use
  Company Number: BR-PFIZER INC-2012193465

PATIENT
  Age: 54 Year
  Sex: Female
  Weight: 72 kg

DRUGS (3)
  1. PANTOPRAZOLE [Suspect]
     Indication: GASTROOESOPHAGEAL REFLUX DISEASE
     Dosage: 40 MG, 1X/DAY
     Route: 048
     Dates: start: 20120707, end: 20120715
  2. ATENOLOL [Concomitant]
     Indication: HYPERTENSION
     Dosage: 25 MG, UNK
     Route: 048
     Dates: start: 20020101
  3. ATENOLOL [Concomitant]
     Indication: ARRHYTHMIA

REACTIONS (6)
  - ARRHYTHMIA [None]
  - ANXIETY [None]
  - DYSPHONIA [None]
  - DYSPNOEA [None]
  - COUGH [None]
  - OROPHARYNGEAL DISCOMFORT [None]
